FAERS Safety Report 5051779-X (Version None)
Quarter: 2006Q3

REPORT INFORMATION
  Report Type: 
  Country: None (occurrence: None)
  Receive Date: 20060714
  Receipt Date: 20060714
  Transmission Date: 20061208
  Serious: Yes (Hospitalization, Other)
  Sender: FDA-Public Use
  Company Number: None

PATIENT
  Age: 51 Year
  Sex: Female
  Weight: 70 kg

DRUGS (1)
  1. DEPODUR [Suspect]
     Indication: JOINT ARTHROPLASTY
     Dosage: 10MG X1 EPIDURAL
     Route: 008
     Dates: start: 20060710, end: 20060712

REACTIONS (11)
  - BRADYCARDIA [None]
  - CARDIAC ENZYMES INCREASED [None]
  - ELECTROCARDIOGRAM T WAVE INVERSION [None]
  - ENCEPHALOPATHY [None]
  - HYPOTENSION [None]
  - HYPOTHERMIA [None]
  - MENTAL STATUS CHANGES [None]
  - MYOCARDIAL ISCHAEMIA [None]
  - RESPIRATORY DEPRESSION [None]
  - URINARY RETENTION [None]
  - WHITE BLOOD CELL COUNT INCREASED [None]
